FAERS Safety Report 12472393 (Version 2)
Quarter: 2016Q3

REPORT INFORMATION
  Report Type: Spontaneous
  Country: US (occurrence: US)
  Receive Date: 20160616
  Receipt Date: 20160720
  Transmission Date: 20161109
  Serious: Yes (Other)
  Sender: FDA-Public Use
  Company Number: US-ASTRAZENECA-2016SE62177

PATIENT
  Sex: Male

DRUGS (4)
  1. ZANTAC [Concomitant]
     Active Substance: RANITIDINE HYDROCHLORIDE
  2. SYMBICORT [Suspect]
     Active Substance: BUDESONIDE\FORMOTEROL FUMARATE DIHYDRATE
     Indication: CHRONIC OBSTRUCTIVE PULMONARY DISEASE
     Dosage: 160/4.5 MCG, TWO PUFFS, TWICE A DAY
     Route: 055
  3. MORPHIN [Concomitant]
     Active Substance: MORPHINE
  4. KLONOPIN [Concomitant]
     Active Substance: CLONAZEPAM

REACTIONS (6)
  - Diarrhoea [Unknown]
  - Hypertension [Unknown]
  - Lung neoplasm malignant [Unknown]
  - Ulcer [Unknown]
  - Product packaging quantity issue [Unknown]
  - Bipolar disorder [Unknown]
